FAERS Safety Report 8423192-6 (Version None)
Quarter: 2012Q2

REPORT INFORMATION
  Report Type: 
  Country: None (occurrence: None)
  Receive Date: 20120608
  Receipt Date: 20120529
  Transmission Date: 20120825
  Serious: Yes (Other)
  Sender: FDA-Public Use
  Company Number: SK-BAXTER-2012BAX007085

PATIENT
  Age: 35 Year
  Sex: Female
  Weight: 65 kg

DRUGS (6)
  1. BUDESONIDUM [Concomitant]
  2. MONTELUKAST [Concomitant]
  3. KIOVIG [Suspect]
     Route: 042
     Dates: start: 20120418, end: 20120418
  4. CIKLEZONID [Concomitant]
  5. DESLORATADINA [Concomitant]
  6. LORATADINA + PSEUDOEFEDRINA [Concomitant]

REACTIONS (1)
  - CHEST DISCOMFORT [None]
